FAERS Safety Report 5358344-5 (Version None)
Quarter: 2007Q2

REPORT INFORMATION
  Report Type: 
  Country: None (occurrence: None)
  Receive Date: 20070614
  Receipt Date: 20070614
  Transmission Date: 20071010
  Serious: Yes (Other)
  Sender: FDA-Public Use
  Company Number: None

PATIENT
  Sex: Male
  Weight: 125 kg

DRUGS (1)
  1. VECURONIUM 10MG BEDFORD [Suspect]
     Indication: INTUBATION
     Dosage: 10MG ONCE IV 3MG AND 2MG ONCE PER DOSE IV
     Route: 042
     Dates: start: 20070605, end: 20070613

REACTIONS (2)
  - DRUG EFFECT DECREASED [None]
  - MUSCLE TWITCHING [None]
